FAERS Safety Report 9238025 (Version 1)
Quarter: 2013Q2

REPORT INFORMATION
  Report Type: Spontaneous
  Country: FR (occurrence: FR)
  Receive Date: 20130418
  Receipt Date: 20130418
  Transmission Date: 20140414
  Serious: Yes (Other)
  Sender: FDA-Public Use
  Company Number: FR-JNJFOC-20130407799

PATIENT
  Sex: Female

DRUGS (4)
  1. REMICADE [Suspect]
     Indication: ARTHRALGIA
     Dosage: THIRD INFUSION
     Route: 042
  2. REMICADE [Suspect]
     Indication: ARTHRALGIA
     Route: 042
  3. REMICADE [Suspect]
     Indication: PUSTULAR PSORIASIS
     Dosage: THIRD INFUSION
     Route: 042
  4. REMICADE [Suspect]
     Indication: PUSTULAR PSORIASIS
     Route: 042

REACTIONS (3)
  - Pleuropericarditis [Unknown]
  - Weight decreased [Unknown]
  - Off label use [Unknown]
